FAERS Safety Report 5159084-8 (Version None)
Quarter: 2006Q4

REPORT INFORMATION
  Report Type: 
  Country: None (occurrence: None)
  Receive Date: 20061128
  Receipt Date: 20060823
  Transmission Date: 20070319
  Serious: Yes (Other)
  Sender: FDA-Public Use
  Company Number: US-BOEHRINGER INGELHEIM PHARMACEUTICALS, INC.-2006-BP-09838BP

PATIENT
  Age: 63 Year
  Sex: Female

DRUGS (1)
  1. ATROVENT [Suspect]
     Indication: CHRONIC OBSTRUCTIVE PULMONARY DISEASE
     Route: 055
     Dates: start: 19960101, end: 20060101

REACTIONS (3)
  - BLADDER CANCER [None]
  - BREAST CANCER [None]
  - BREAST CANCER FEMALE [None]
